FAERS Safety Report 17952495 (Version 2)
Quarter: 2020Q3

REPORT INFORMATION
  Report Type: Report from Study
  Country: None (occurrence: US)
  Receive Date: 20200626
  Receipt Date: 20200713
  Transmission Date: 20201103
  Serious: Yes (Hospitalization, Other)
  Sender: FDA-Public Use
  Company Number: US-ABBVIE-20K-163-3460217-00

PATIENT
  Age: 20 Year
  Sex: Female
  Weight: 72.6 kg

DRUGS (8)
  1. HUMIRA [Suspect]
     Active Substance: ADALIMUMAB
     Route: 058
     Dates: start: 20160907
  2. 6?MP [Suspect]
     Active Substance: MERCAPTOPURINE
     Indication: CROHN^S DISEASE
     Route: 048
     Dates: start: 20150305, end: 20150723
  3. VITAMIN D3 [Concomitant]
     Active Substance: CHOLECALCIFEROL
     Indication: VITAMIN SUPPLEMENTATION
     Route: 048
     Dates: start: 20170504
  4. 6?MP [Suspect]
     Active Substance: MERCAPTOPURINE
     Route: 048
     Dates: start: 20160306, end: 20180827
  5. 6?MP [Suspect]
     Active Substance: MERCAPTOPURINE
     Dosage: MONDAY THROUGH FRIDAY
     Route: 048
     Dates: start: 20180828
  6. HUMIRA [Suspect]
     Active Substance: ADALIMUMAB
     Route: 058
     Dates: start: 20160330, end: 20160907
  7. 6?MP [Suspect]
     Active Substance: MERCAPTOPURINE
     Dosage: SATURDAY AND SUNDAY
     Route: 048
     Dates: start: 20180828
  8. HUMIRA [Suspect]
     Active Substance: ADALIMUMAB
     Indication: CROHN^S DISEASE
     Route: 058
     Dates: start: 20160318, end: 20160330

REACTIONS (1)
  - Large intestinal stenosis [Recovered/Resolved]

NARRATIVE: CASE EVENT DATE: 20200428
